FAERS Safety Report 11199196 (Version 7)
Quarter: 2021Q2

REPORT INFORMATION
  Report Type: Spontaneous
  Country: US (occurrence: US)
  Receive Date: 20150618
  Receipt Date: 20210528
  Transmission Date: 20210716
  Serious: Yes (Other)
  Sender: FDA-Public Use
  Company Number: US-PFIZER INC-2015201891

PATIENT
  Age: 68 Year
  Sex: Female
  Weight: 49.9 kg

DRUGS (7)
  1. LASIX [Suspect]
     Active Substance: FUROSEMIDE
     Dosage: UNK
  2. PLAQUENIL [Suspect]
     Active Substance: HYDROXYCHLOROQUINE SULFATE
     Dosage: UNK, 1X/DAY
  3. DETROL LA [Suspect]
     Active Substance: TOLTERODINE TARTRATE
     Dosage: 4 MG, DAILY (EVERY NIGHT)
  4. PREDNISONE. [Concomitant]
     Active Substance: PREDNISONE
     Dosage: 60 MG, DAILY
  5. PREDNISONE. [Concomitant]
     Active Substance: PREDNISONE
     Dosage: 5 MG, 1X/DAY
  6. PREDNISONE. [Concomitant]
     Active Substance: PREDNISONE
     Dosage: 20 MG, UNK
  7. METHOTREXATE. [Concomitant]
     Active Substance: METHOTREXATE
     Dosage: UNK
     Dates: end: 201907

REACTIONS (21)
  - Insomnia [Unknown]
  - Urinary incontinence [Unknown]
  - Lip dry [Unknown]
  - Chapped lips [Unknown]
  - Thirst [Unknown]
  - Product dose omission issue [Unknown]
  - Renal failure [Unknown]
  - Weight decreased [Unknown]
  - Systemic lupus erythematosus [Unknown]
  - Rheumatoid arthritis [Unknown]
  - Diarrhoea [Unknown]
  - Joint dislocation [Unknown]
  - Neoplasm malignant [Unknown]
  - Spinal deformity [Unknown]
  - Abdominal discomfort [Unknown]
  - Pain [Unknown]
  - Lip haemorrhage [Unknown]
  - Sensory loss [Unknown]
  - Loss of personal independence in daily activities [Unknown]
  - Malaise [Unknown]
  - Memory impairment [Unknown]
